FAERS Safety Report 6671125-5 (Version None)
Quarter: 2010Q2

REPORT INFORMATION
  Report Type: 
  Country: None (occurrence: None)
  Receive Date: 20100407
  Receipt Date: 20100329
  Transmission Date: 20101027
  Serious: Yes (Life-Threatening, Hospitalization)
  Sender: FDA-Public Use
  Company Number: FI-ELI_LILLY_AND_COMPANY-FI201003007995

PATIENT
  Sex: Female
  Weight: 54 kg

DRUGS (9)
  1. PEMETREXED [Suspect]
     Indication: NON-SMALL CELL LUNG CANCER
     Dosage: 500 MG/M2, DAY 1 EVERY 21 DAYS
     Route: 042
     Dates: start: 20090527, end: 20090729
  2. PEMETREXED [Suspect]
     Dosage: DAY 1 EVERY 21 DAYS
     Route: 065
     Dates: start: 20090828
  3. CISPLATIN [Suspect]
     Indication: NON-SMALL CELL LUNG CANCER
     Dosage: 75 MG/M2, DAY 1 EVERY 21 DAYS
     Route: 042
     Dates: start: 20090527, end: 20090729
  4. LEVOTHYROXINE SODIUM [Concomitant]
     Indication: HYPOTHYROIDISM
     Dosage: UNK UNK, UNKNOWN
     Route: 065
     Dates: start: 19980101
  5. LORAZEPAM [Concomitant]
     Indication: INSOMNIA
     Dosage: UNK UNK, UNKNOWN
     Route: 065
     Dates: start: 20090617
  6. HYDROCHLOROTHIAZIDE [Concomitant]
     Indication: OEDEMA
     Dosage: UNK UNK, UNKNOWN
     Route: 065
     Dates: start: 19980101
  7. FOLIC ACID [Concomitant]
     Indication: PROPHYLAXIS
     Dosage: UNK, UNKNOWN
     Route: 065
     Dates: start: 20090519
  8. VITAMIN B-12 [Concomitant]
     Indication: PROPHYLAXIS
     Dosage: UNK, UNKNOWN
     Route: 065
     Dates: start: 20090519
  9. DEXAMETHASONE [Concomitant]
     Indication: PROPHYLAXIS
     Dosage: UNK, UNKNOWN
     Route: 065
     Dates: start: 20090519

REACTIONS (1)
  - PULMONARY EMBOLISM [None]
